FAERS Safety Report 18229553 (Version 1)
Quarter: 2020Q3

REPORT INFORMATION
  Report Type: Spontaneous
  Country: US (occurrence: US)
  Receive Date: 20200903
  Receipt Date: 20200903
  Transmission Date: 20201103
  Serious: No
  Sender: FDA-Public Use
  Company Number: US-PFIZER INC-2020339817

PATIENT
  Age: 66 Year
  Sex: Female
  Weight: 85 kg

DRUGS (2)
  1. ATORVASTATIN CALCIUM. [Suspect]
     Active Substance: ATORVASTATIN CALCIUM
     Dosage: 10 MG, DAILY (TAKE 1 TABLET EVERYDAY BY ORAL ROUTE FOR 90 DAYS)
     Route: 048
  2. CELECOXIB. [Suspect]
     Active Substance: CELECOXIB
     Dosage: 200 MG, 2X/DAY (TAKE 1 CAPSULE TWICE A DAY BY ORAL ROUTE AS DIRECTED FOR 90 DAYS)
     Route: 048

REACTIONS (3)
  - Seasonal allergy [Unknown]
  - Vitamin D deficiency [Unknown]
  - Vitamin B12 deficiency [Unknown]

NARRATIVE: CASE EVENT DATE: 20200721
